FAERS Safety Report 7691616-8 (Version None)
Quarter: 2011Q3

REPORT INFORMATION
  Report Type: 
  Country: None (occurrence: None)
  Receive Date: 20110818
  Receipt Date: 20110816
  Transmission Date: 20111222
  Serious: Yes (Other)
  Sender: FDA-Public Use
  Company Number: CHPA2011DE10583

PATIENT
  Sex: Female

DRUGS (2)
  1. TAVEGIL [Suspect]
     Indication: HYPERSENSITIVITY
  2. TAVEGIL [Suspect]
     Indication: URTICARIA
     Dosage: 1 DF, QD
     Route: 048
     Dates: start: 20110802, end: 20110803

REACTIONS (8)
  - RASH PUSTULAR [None]
  - PILOERECTION [None]
  - CARDIOVASCULAR DISORDER [None]
  - URTICARIA [None]
  - HYPERSENSITIVITY [None]
  - CHILLS [None]
  - FLUID RETENTION [None]
  - ERYTHEMA [None]
